FAERS Safety Report 17967345 (Version 1)
Quarter: 2020Q3

REPORT INFORMATION
  Report Type: Spontaneous
  Country: FR (occurrence: FR)
  Receive Date: 20200701
  Receipt Date: 20200701
  Transmission Date: 20201103
  Serious: Yes (Hospitalization)
  Sender: FDA-Public Use
  Company Number: FR-TEVA-2020-FR-1793034

PATIENT
  Age: 79 Year
  Sex: Male
  Weight: 63 kg

DRUGS (1)
  1. AMOXICILLINE ANHYDRE [Suspect]
     Active Substance: AMOXICILLIN
     Indication: SEPTIC ARTHRITIS STREPTOCOCCAL
     Dosage: 3G / 8H THEN 2G / 8H THEN 0.5G / 8H
     Route: 048
     Dates: start: 20200408, end: 20200515

REACTIONS (1)
  - Acute kidney injury [Recovering/Resolving]

NARRATIVE: CASE EVENT DATE: 20200414
